FAERS Safety Report 25713415 (Version 2)
Quarter: 2025Q3

REPORT INFORMATION
  Report Type: Spontaneous
  Country: US (occurrence: US)
  Receive Date: 20250822
  Receipt Date: 20250919
  Transmission Date: 20251020
  Serious: No
  Sender: AMGEN
  Company Number: US-AMGEN-USASP2025166528

PATIENT
  Sex: Female

DRUGS (1)
  1. EVENITY [Suspect]
     Active Substance: ROMOSOZUMAB-AQQG
     Indication: Osteoporosis
     Dosage: 210 MILLIGRAM, QMO
     Route: 058
     Dates: start: 202508

REACTIONS (3)
  - Bone pain [Unknown]
  - Sleep disorder due to general medical condition, insomnia type [Unknown]
  - Swelling face [Unknown]

NARRATIVE: CASE EVENT DATE: 20250801
